FAERS Safety Report 4509761-4 (Version None)
Quarter: 2004Q4

REPORT INFORMATION
  Report Type: 
  Country: None (occurrence: None)
  Receive Date: 20041124
  Receipt Date: 20031217
  Transmission Date: 20050328
  Serious: No
  Sender: FDA-Public Use
  Company Number: US-BRISTOL-MYERS SQUIBB COMPANY-12460374

PATIENT
  Sex: Female

DRUGS (4)
  1. AVALIDE [Suspect]
     Dosage: 150/12.5MG TABS
     Route: 048
  2. PRAVACHOL [Concomitant]
  3. XANAX [Concomitant]
  4. ZOLOFT [Concomitant]

REACTIONS (1)
  - WEIGHT INCREASED [None]
